FAERS Safety Report 4743649-9 (Version None)
Quarter: 2005Q3

REPORT INFORMATION
  Report Type: 
  Country: None (occurrence: None)
  Receive Date: 20050809
  Receipt Date: 20050726
  Transmission Date: 20060218
  Serious: Yes (Life-Threatening)
  Sender: FDA-Public Use
  Company Number: 216440

PATIENT
  Age: 34 Year
  Sex: Male

DRUGS (3)
  1. MABTHERA(RITUXIMAB) CONC FOR SOLUTION FOR INFUSION [Suspect]
     Dosage: 100 MG, QD, INTRAVENOUS
     Route: 042
     Dates: start: 20041207, end: 20041207
  2. CYCLOPHOSPHAMIDE [Suspect]
     Dosage: 1840 MG, INTRAVENOUS
     Route: 042
     Dates: start: 20040801, end: 20041201
  3. FLUDARABINE PHOSPHATE [Suspect]
     Dosage: 10 MG, ORAL
     Route: 048
     Dates: start: 20040801, end: 20041201

REACTIONS (2)
  - AGRANULOCYTOSIS [None]
  - PYREXIA [None]
